FAERS Safety Report 5809952-6 (Version None)
Quarter: 2008Q3

REPORT INFORMATION
  Report Type: 
  Country: None (occurrence: None)
  Receive Date: 20080714
  Receipt Date: 20080714
  Transmission Date: 20090109
  Serious: Yes (Death)
  Sender: FDA-Public Use
  Company Number: None

PATIENT
  Age: 87 Year
  Sex: Female
  Weight: 58.0604 kg

DRUGS (1)
  1. RECLAST [Suspect]
     Indication: OSTEOPOROSIS POSTMENOPAUSAL
     Dosage: 5 MG ONE TIME DOSE IV DRIP
     Route: 041

REACTIONS (4)
  - ARTHRALGIA [None]
  - ASTHENIA [None]
  - BLOOD CALCIUM DECREASED [None]
  - SUDDEN CARDIAC DEATH [None]
